FAERS Safety Report 9228474 (Version 2)
Quarter: 2013Q2

REPORT INFORMATION
  Report Type: Report from Study
  Country: DE (occurrence: DE)
  Receive Date: 20130412
  Receipt Date: 20130524
  Transmission Date: 20140414
  Serious: Yes (Other)
  Sender: FDA-Public Use
  Company Number: DE-ROCHE-1211395

PATIENT
  Sex: 0

DRUGS (2)
  1. ALTEPLASE [Suspect]
     Indication: PERIPHERAL ISCHAEMIA
     Dosage: SINGLE SHOT DOSE 3 MG; 2 MG/HR
     Route: 013
  2. HEPARIN [Suspect]
     Indication: THROMBOSIS PROPHYLAXIS
     Dosage: 500 IU/HR AND 1000 IU/HR.
     Route: 013

REACTIONS (4)
  - Amputation [Unknown]
  - Anastomotic stenosis [Unknown]
  - Peripheral artery aneurysm [Unknown]
  - Fasciotomy [Unknown]
